FAERS Safety Report 21028141 (Version 1)
Quarter: 2022Q2

REPORT INFORMATION
  Report Type: Spontaneous
  Country: US (occurrence: None)
  Receive Date: 20220630
  Receipt Date: 20220630
  Transmission Date: 20220721
  Serious: Yes (Hospitalization)
  Sender: FDA-Public Use
  Company Number: None

PATIENT
  Sex: Female

DRUGS (31)
  1. PULMOZYME [Suspect]
     Active Substance: DORNASE ALFA
     Indication: Cystic fibrosis
     Dosage: 2.5 MG/2.5ML?INHALE 2.5 ML VIA NEV TWICE DAILY?
     Route: 055
     Dates: start: 20210831
  2. ADULT AEROSOL MASK [Concomitant]
  3. ALBUTEROL [Concomitant]
  4. ALBUTEROL SULFATE [Concomitant]
  5. AZITHROMYCIN [Concomitant]
     Active Substance: AZITHROMYCIN
  6. BACTRIM DS [Concomitant]
     Active Substance: SULFAMETHOXAZOLE\TRIMETHOPRIM
  7. BUDESONIDE/FORMOTEROL FUM [Concomitant]
  8. CETIRIZINE HCL [Concomitant]
  9. CIPROFLOXACIN [Concomitant]
  10. COMPLETE FORMULATION MULT [Concomitant]
  11. CREON [Concomitant]
     Active Substance: PANCRELIPASE AMYLASE\PANCRELIPASE LIPASE\PANCRELIPASE PROTEASE
  12. DOXYCYCLINE HYCLATE [Concomitant]
     Active Substance: DOXYCYCLINE HYCLATE
  13. ENSURE [Concomitant]
     Active Substance: AMINO ACIDS\DEXTROSE\ELECTROLYTES NOS\SOYBEAN OIL\VITAMINS
  14. FLONASE [Concomitant]
     Active Substance: FLUTICASONE PROPIONATE
  15. FLUOXETINE HCL [Concomitant]
  16. FLUTICASONE PROPIONATE [Concomitant]
  17. HYDROCO/APAP [Concomitant]
  18. INCRUSE ELLIPTA [Concomitant]
  19. MONTELUKAST SODIUM [Concomitant]
  20. MULTIVITAMIN CHW ADULT [Concomitant]
  21. PARI - ADULT MASK [Concomitant]
  22. PARI LC PLUS NEBULIZER [Concomitant]
  23. PAROXETINE [Concomitant]
  24. PREDNISONE [Concomitant]
     Active Substance: PREDNISONE
  25. PULMOZYME [Concomitant]
  26. SODIUM CHLORIDE [Concomitant]
     Active Substance: SODIUM CHLORIDE
  27. SYMBICORT [Concomitant]
  28. TOBRAMYCIN [Concomitant]
     Active Substance: TOBRAMYCIN
  29. VITAMIN D [Concomitant]
     Active Substance: VITAMIN D NOS
  30. VITAMIN E [Concomitant]
     Active Substance: .ALPHA.-TOCOPHEROL
  31. VITAMIN E/D-ALPHA [Concomitant]

REACTIONS (1)
  - Hospitalisation [None]
